FAERS Safety Report 5051665-5 (Version None)
Quarter: 2006Q3

REPORT INFORMATION
  Report Type: 
  Country: None (occurrence: None)
  Receive Date: 20060711
  Receipt Date: 20060630
  Transmission Date: 20061208
  Serious: Yes (Other)
  Sender: FDA-Public Use
  Company Number: 200612591BCC

PATIENT
  Age: 61 Year
  Sex: Female
  Weight: 68.4932 kg

DRUGS (8)
  1. GENUINE BAYER TABLETS (ACETYLSALICYLIC ACID) [Suspect]
     Indication: ANTICOAGULANT THERAPY
     Dosage: 325 MG, QD, ORAL
     Route: 048
     Dates: start: 20060124
  2. GENUINE BAYER TABLETS (ACETYLSALICYLIC ACID) [Suspect]
     Indication: CORONARY ARTERY BYPASS
     Dosage: 325 MG, QD, ORAL
     Route: 048
     Dates: start: 20060124
  3. GENUINE BAYER TABLETS (ACETYLSALICYLIC ACID) [Suspect]
     Indication: ISCHAEMIC HEART DISEASE PROPHYLAXIS
     Dosage: 325 MG, QD, ORAL
     Route: 048
     Dates: start: 20060124
  4. LIPITOR [Suspect]
     Dates: end: 20060626
  5. HYZAAR [Concomitant]
  6. GLUCOVANCE [Concomitant]
  7. ALTACE [Concomitant]
  8. COREG [Concomitant]

REACTIONS (4)
  - BREAST ENLARGEMENT [None]
  - MYOCARDIAL INFARCTION [None]
  - VAGINAL DISCHARGE [None]
  - WEIGHT INCREASED [None]
